FAERS Safety Report 6153989-7 (Version None)
Quarter: 2009Q2

REPORT INFORMATION
  Report Type: 
  Country: None (occurrence: None)
  Receive Date: 20090414
  Receipt Date: 20090406
  Transmission Date: 20091009
  Serious: Yes (Hospitalization)
  Sender: FDA-Public Use
  Company Number: US-BAYER-200910987BCC

PATIENT
  Age: 20 Year
  Sex: Female

DRUGS (1)
  1. ALEVE (CAPLET) [Suspect]
     Dosage: TOTAL DAILY DOSE: 1320 MG  UNIT DOSE: 220 MG
     Dates: start: 20090327

REACTIONS (5)
  - ASTHENOPIA [None]
  - CHEST PAIN [None]
  - CHOKING SENSATION [None]
  - FEELING HOT [None]
  - NAUSEA [None]
